FAERS Safety Report 23418286 (Version 3)
Quarter: 2024Q1

REPORT INFORMATION
  Report Type: Spontaneous
  Country: DE (occurrence: DE)
  Receive Date: 20240118
  Receipt Date: 20240202
  Transmission Date: 20240409
  Serious: Yes (Hospitalization, Other)
  Sender: FDA-Public Use
  Company Number: DE-BRISTOL-MYERS SQUIBB COMPANY-2024-004485

PATIENT
  Age: 61 Year
  Sex: Male
  Weight: 82 kg

DRUGS (19)
  1. OPDIVO [Suspect]
     Active Substance: NIVOLUMAB
     Indication: Adenocarcinoma gastric
     Route: 042
     Dates: start: 20231012
  2. OPDIVO [Suspect]
     Active Substance: NIVOLUMAB
     Route: 042
     Dates: start: 20231027
  3. OPDIVO [Suspect]
     Active Substance: NIVOLUMAB
     Route: 042
     Dates: start: 20231110
  4. FLOT [Concomitant]
     Indication: Product used for unknown indication
     Dates: start: 20231012
  5. FLOT [Concomitant]
     Dates: start: 20231027
  6. FLOT [Concomitant]
     Dates: start: 20230927
  7. FLOT [Concomitant]
     Dates: start: 20231110
  8. FLOT [Concomitant]
     Dates: start: 20231201
  9. FLOT [Concomitant]
     Dates: start: 20231215
  10. RAMIPRIL [Concomitant]
     Active Substance: RAMIPRIL
     Indication: Hypertension
     Dates: start: 2000
  11. PANTOPRAZOLE SODIUM [Concomitant]
     Active Substance: PANTOPRAZOLE SODIUM
     Indication: Gastric cancer
     Dates: start: 202401
  12. PANTOPRAZOLE SODIUM [Concomitant]
     Active Substance: PANTOPRAZOLE SODIUM
     Dates: start: 202309, end: 202312
  13. PANTOPRAZOLE SODIUM [Concomitant]
     Active Substance: PANTOPRAZOLE SODIUM
  14. NOVALGIN (METAMIZOLE SODIUM) [Concomitant]
     Active Substance: METAMIZOLE SODIUM
     Indication: Gastric cancer
     Dosage: 80 MH
     Dates: start: 20230927, end: 20240126
  15. INSULIN DETEMIR [Concomitant]
     Active Substance: INSULIN DETEMIR
     Indication: Type 1 diabetes mellitus
     Dosage: 100 UNITS PER ML (16 ML IN THE MORNING, 22 ML IN THE EVENING),?APPROXIMATELY 40 INTERNATIONAL UNITS/
     Dates: start: 2010
  16. AMLODIPINE BESYLATE [Concomitant]
     Active Substance: AMLODIPINE BESYLATE
     Indication: Product used for unknown indication
     Dosage: IN THE MORNING
  17. ASPIRIN [Concomitant]
     Active Substance: ASPIRIN
     Indication: Cerebrovascular accident
     Dosage: IN THE MORNING
     Dates: start: 202310
  18. ATORVASTATIN CALCIUM [Concomitant]
     Active Substance: ATORVASTATIN CALCIUM
     Indication: Product used for unknown indication
     Dosage: IN THE MORNING
  19. ACTRAPID [Concomitant]
     Active Substance: INSULIN HUMAN
     Indication: Product used for unknown indication
     Dosage: IN THE MORNING

REACTIONS (2)
  - Toxic epidermal necrolysis [Unknown]
  - Malignant neoplasm progression [Unknown]

NARRATIVE: CASE EVENT DATE: 20231018
